FAERS Safety Report 9617615 (Version 2)
Quarter: 2013Q4

REPORT INFORMATION
  Report Type: Spontaneous
  Country: GB (occurrence: GB)
  Receive Date: 20131011
  Receipt Date: 20131031
  Transmission Date: 20140711
  Serious: Yes (Death, Other)
  Sender: FDA-Public Use
  Company Number: GB-ROCHE-1287042

PATIENT
  Sex: Female

DRUGS (3)
  1. HERCEPTIN [Suspect]
     Indication: HER-2 POSITIVE BREAST CANCER
     Route: 065
     Dates: start: 200908
  2. XELODA [Suspect]
     Indication: HER-2 POSITIVE BREAST CANCER
     Route: 065
     Dates: start: 200910
  3. TAXOL [Concomitant]
     Route: 065
     Dates: start: 200910

REACTIONS (4)
  - Death [Fatal]
  - Disease progression [Unknown]
  - Malaise [Unknown]
  - No therapeutic response [Unknown]
